FAERS Safety Report 9203882 (Version 1)
Quarter: 2013Q2

REPORT INFORMATION
  Report Type: Spontaneous
  Country: US (occurrence: US)
  Receive Date: 20130402
  Receipt Date: 20130402
  Transmission Date: 20140414
  Serious: Yes (Other)
  Sender: FDA-Public Use
  Company Number: US-SANOFI-AVENTIS-2013SA032605

PATIENT
  Sex: Female

DRUGS (7)
  1. OXALIPLATIN [Suspect]
     Dates: start: 201006
  2. OXALIPLATIN [Suspect]
     Dates: start: 201011, end: 201103
  3. FU [Suspect]
     Dates: start: 201006
  4. FU [Suspect]
     Dates: start: 201011, end: 201103
  5. FOLINIC ACID [Suspect]
     Dates: start: 201006
  6. FOLINIC ACID [Suspect]
     Dates: start: 201011, end: 201103
  7. XELODA [Concomitant]
     Dates: start: 201203, end: 201209

REACTIONS (6)
  - Disease progression [Unknown]
  - Colon cancer [Unknown]
  - Hepatic lesion [Unknown]
  - Gallbladder disorder [Unknown]
  - Appendix disorder [Unknown]
  - Metastases to lung [None]
